FAERS Safety Report 17048163 (Version 1)
Quarter: 2019Q4

REPORT INFORMATION
  Report Type: Spontaneous
  Country: US (occurrence: US)
  Receive Date: 20191119
  Receipt Date: 20191119
  Transmission Date: 20200122
  Serious: No
  Sender: FDA-Public Use
  Company Number: US-PFIZER INC-2019243395

PATIENT
  Age: 82 Year

DRUGS (1)
  1. PREMARIN [Suspect]
     Active Substance: ESTROGENS, CONJUGATED
     Dosage: QUANTITY FOR 90 DAYS: 42.5 GM. TUBE

REACTIONS (1)
  - Hypoacusis [Unknown]
